FAERS Safety Report 9538473 (Version 1)
Quarter: 2013Q3

REPORT INFORMATION
  Report Type: Spontaneous
  Country: NO (occurrence: NO)
  Receive Date: 20130920
  Receipt Date: 20130920
  Transmission Date: 20140515
  Serious: Yes (Other)
  Sender: FDA-Public Use
  Company Number: NO-PFIZER INC-2013271221

PATIENT
  Sex: Female

DRUGS (1)
  1. PANTOPRAZOLE [Suspect]

REACTIONS (9)
  - Abdominal distension [Unknown]
  - Constipation [Unknown]
  - Disorientation [Unknown]
  - Dry mouth [Unknown]
  - Hallucination [Unknown]
  - Rash [Unknown]
  - Back pain [Unknown]
  - Product substitution issue [Unknown]
  - Somnolence [Unknown]
